FAERS Safety Report 22067543 (Version 1)
Quarter: 2023Q1

REPORT INFORMATION
  Report Type: Spontaneous
  Country: BR (occurrence: BR)
  Receive Date: 20230307
  Receipt Date: 20230307
  Transmission Date: 20230417
  Serious: Yes (Other)
  Sender: FDA-Public Use
  Company Number: BR-JNJFOC-20230302691

PATIENT
  Sex: Female

DRUGS (1)
  1. IMBRUVICA [Suspect]
     Active Substance: IBRUTINIB
     Indication: Marginal zone lymphoma
     Dosage: 1 CAPSULES/DAY, UP TO 3 CAPSULES/DAY
     Route: 048
     Dates: start: 202205, end: 202210

REACTIONS (2)
  - Haemolytic anaemia [Recovering/Resolving]
  - Platelet count abnormal [Unknown]
